FAERS Safety Report 7656691-5 (Version None)
Quarter: 2011Q3

REPORT INFORMATION
  Report Type: 
  Country: None (occurrence: None)
  Receive Date: 20110804
  Receipt Date: 20110802
  Transmission Date: 20111222
  Serious: Yes (Hospitalization, Other)
  Sender: FDA-Public Use
  Company Number: US-MERCK-1103USA02685

PATIENT
  Age: 74 Year
  Sex: Female

DRUGS (11)
  1. FOSAMAX [Suspect]
     Route: 048
     Dates: start: 20010321, end: 20070325
  2. OMEGA-3 MARINE TRIGLYCERIDES [Concomitant]
     Route: 065
     Dates: start: 19960101
  3. ALENDRONATE SODIUM [Suspect]
     Indication: OSTEOPOROSIS
     Route: 048
     Dates: start: 20080325, end: 20100801
  4. CALCIUM CARBONATE [Concomitant]
     Route: 065
     Dates: start: 19960101
  5. VITAMINS (UNSPECIFIED) [Concomitant]
     Route: 065
     Dates: start: 19960101
  6. FOSAMAX [Suspect]
     Route: 048
     Dates: start: 20100719
  7. FOSAMAX [Suspect]
     Route: 048
     Dates: start: 20010321, end: 20070325
  8. CALCIUM (UNSPECIFIED) [Concomitant]
     Route: 065
     Dates: start: 19960101
  9. FOSAMAX [Suspect]
     Route: 048
     Dates: start: 20100719
  10. FOSAMAX [Suspect]
     Indication: OSTEOPOROSIS
     Route: 048
     Dates: start: 19970314, end: 20000510
  11. FOSAMAX [Suspect]
     Indication: OSTEOPENIA
     Route: 048
     Dates: start: 19970314, end: 20000510

REACTIONS (24)
  - SKIN CANCER [None]
  - HYPOTHYROIDISM [None]
  - INTERVERTEBRAL DISC DEGENERATION [None]
  - BONE DENSITY DECREASED [None]
  - EATING DISORDER [None]
  - ABASIA [None]
  - DISCOMFORT [None]
  - HYPERTENSION [None]
  - TOOTH DISORDER [None]
  - DYSLIPIDAEMIA [None]
  - TIBIA FRACTURE [None]
  - MITRAL VALVE INCOMPETENCE [None]
  - LUMBAR VERTEBRAL FRACTURE [None]
  - BONE LOSS [None]
  - ELECTROCARDIOGRAM ABNORMAL [None]
  - BACK PAIN [None]
  - BONE DISORDER [None]
  - TOOTH INFECTION [None]
  - GASTROOESOPHAGEAL REFLUX DISEASE [None]
  - INTERVERTEBRAL DISC PROTRUSION [None]
  - AORTIC CALCIFICATION [None]
  - SPINAL DISORDER [None]
  - CONSTIPATION [None]
  - CARDIAC MURMUR [None]
